FAERS Safety Report 5840571-1 (Version None)
Quarter: 2008Q3

REPORT INFORMATION
  Report Type: 
  Country: None (occurrence: None)
  Receive Date: 20080731
  Receipt Date: 20080512
  Transmission Date: 20090109
  Serious: No
  Sender: FDA-Public Use
  Company Number: US200805002372

PATIENT
  Age: 62 Year
  Sex: Female
  Weight: 79.8 kg

DRUGS (7)
  1. BYETTA [Suspect]
     Indication: TYPE 2 DIABETES MELLITUS
     Dosage: 5 UG, 2/D, SUBCUTANEOUS; 10 UG, 2/D, SUBCUTANEOUS
     Route: 058
     Dates: start: 20080408, end: 20080501
  2. BYETTA [Suspect]
     Indication: TYPE 2 DIABETES MELLITUS
     Dosage: 5 UG, 2/D, SUBCUTANEOUS; 10 UG, 2/D, SUBCUTANEOUS
     Route: 058
     Dates: start: 20080501
  3. EXENATIDE 5MCG PEN, DISPOSABLE DEVICE (EXENATIDE 10 (5MCG)) PEN,DISPOS [Concomitant]
  4. EXENATIDE 10MCG PEN, DISPOSABLE DEVICE (EXENATIDE PEN (10MCG)) PEN,DIS [Concomitant]
  5. DRUG USED IN DIABETES [Concomitant]
  6. AZOR (ALPRAZOLAM) TABLET [Concomitant]
  7. SIMVASTATIN [Concomitant]

REACTIONS (1)
  - PAIN IN EXTREMITY [None]
